FAERS Safety Report 6725546-2 (Version None)
Quarter: 2010Q2

REPORT INFORMATION
  Report Type: 
  Country: None (occurrence: None)
  Receive Date: 20100514
  Receipt Date: 20100506
  Transmission Date: 20101027
  Serious: Yes (Hospitalization, Other)
  Sender: FDA-Public Use
  Company Number: AU-ROCHE-693048

PATIENT
  Sex: Female

DRUGS (11)
  1. ACTEMRA [Suspect]
     Indication: RHEUMATOID ARTHRITIS
     Dosage: FORM: INFUSION. DOSE: 8 MG/KG
     Route: 042
     Dates: start: 20100310
  2. AVAPRO [Concomitant]
     Dosage: COATED TABLET
  3. CALTRATE [Concomitant]
  4. FOLIC ACID [Concomitant]
     Dosage: 1 TABLET THE DAY AFTER METHOTREXATE.
     Route: 048
  5. ISOPTIN SR [Concomitant]
     Dosage: TABLET, MODIFIED RELEASE
  6. METHOTREXATE [Concomitant]
     Dosage: WEEKLY
     Route: 048
  7. NEXIUM [Concomitant]
     Dosage: COATED TABLET
  8. OSTELIN [Concomitant]
     Dosage: DRUG NAME: OSTELIN VITAMIN D
  9. PLAQUENIL [Concomitant]
     Dosage: COATED TABLET
  10. SULFASALAZINE [Concomitant]
  11. LEVOTHYROXINE SODIUM [Concomitant]
     Route: 048

REACTIONS (3)
  - DEVICE OCCLUSION [None]
  - DIVERTICULITIS [None]
  - INTESTINAL PERFORATION [None]
